FAERS Safety Report 11619047 (Version 2)
Quarter: 2017Q2

REPORT INFORMATION
  Report Type: Spontaneous
  Country: US (occurrence: US)
  Receive Date: 20151012
  Receipt Date: 20170414
  Transmission Date: 20170829
  Serious: Yes (Other)
  Sender: FDA-Public Use
  Company Number: US-ELI_LILLY_AND_COMPANY-US201510000973

PATIENT
  Age: 60 Year
  Sex: Female

DRUGS (36)
  1. CYMBALTA [Suspect]
     Active Substance: DULOXETINE HYDROCHLORIDE
     Indication: PAIN
     Dosage: 30 MG, EACH MORNING
     Route: 048
     Dates: start: 20050819
  2. TEMAZEPAM. [Concomitant]
     Active Substance: TEMAZEPAM
     Dosage: UNK, UNKNOWN
     Route: 065
  3. GABAPENTIN. [Concomitant]
     Active Substance: GABAPENTIN
  4. CYMBALTA [Suspect]
     Active Substance: DULOXETINE HYDROCHLORIDE
     Indication: FIBROMYALGIA
     Dosage: UNK, UNKNOWN
     Route: 048
  5. METHYLPREDNISOLONE. [Concomitant]
     Active Substance: METHYLPREDNISOLONE
  6. ECONAZOLE NITRATE. [Concomitant]
     Active Substance: ECONAZOLE NITRATE
  7. POTASSIUM CHLORATE [Concomitant]
     Active Substance: POTASSIUM CHLORATE
  8. BELVIQ [Concomitant]
     Active Substance: LORCASERIN HYDROCHLORIDE
  9. CYMBALTA [Suspect]
     Active Substance: DULOXETINE HYDROCHLORIDE
     Dosage: 60 MG, AT NIGHT
     Route: 048
     Dates: start: 20050915
  10. BUPROPION. [Concomitant]
     Active Substance: BUPROPION
     Dosage: 100 MG, EACH MORNING
     Route: 048
  11. PROAIR HFA [Concomitant]
     Active Substance: ALBUTEROL SULFATE
  12. CYMBALTA [Suspect]
     Active Substance: DULOXETINE HYDROCHLORIDE
     Indication: MAJOR DEPRESSION
     Dosage: 60 MG, EACH MORNING
     Route: 048
     Dates: start: 20050915
  13. ALPRAZOLAM. [Concomitant]
     Active Substance: ALPRAZOLAM
     Dosage: UNK, UNKNOWN
     Route: 065
  14. TRIAMTERENE AND HYDROCHLOROTHIAZIDE [Concomitant]
     Active Substance: HYDROCHLOROTHIAZIDE\TRIAMTERENE
     Dosage: UNK, UNKNOWN
     Route: 065
  15. AZITHROMYCIN ANHYDROUS. [Concomitant]
     Active Substance: AZITHROMYCIN ANHYDROUS
  16. VITAMIN D [Concomitant]
     Active Substance: CHOLECALCIFEROL
  17. MUPIROCIN. [Concomitant]
     Active Substance: MUPIROCIN
  18. ARMOUR THYROID [Concomitant]
     Active Substance: THYROID, PORCINE
     Dosage: UNK, UNKNOWN
     Route: 065
  19. ALBUTEROL                          /00139501/ [Concomitant]
     Active Substance: ALBUTEROL
  20. FEROCON [Concomitant]
     Active Substance: FERROUS FUMARATE\FOLIC ACID\VITAMIN B COMPLEX
  21. LYRICA [Concomitant]
     Active Substance: PREGABALIN
  22. ZOLPIDEM [Concomitant]
     Active Substance: ZOLPIDEM\ZOLPIDEM TARTRATE
  23. NEURONTIN [Concomitant]
     Active Substance: GABAPENTIN
     Dosage: 400 MG, BID
     Route: 065
  24. VICODIN [Concomitant]
     Active Substance: ACETAMINOPHEN\HYDROCODONE BITARTRATE
     Indication: FIBROMYALGIA
  25. FLOVENT [Concomitant]
     Active Substance: FLUTICASONE PROPIONATE
  26. OMEPRAZOLE. [Concomitant]
     Active Substance: OMEPRAZOLE
  27. NYSTATIN W/TRIAMCINOLONE           /00945901/ [Concomitant]
  28. FOLTRIN [Concomitant]
  29. CEPHALEXIN                         /00145501/ [Concomitant]
     Active Substance: CEPHALEXIN
  30. CYMBALTA [Suspect]
     Active Substance: DULOXETINE HYDROCHLORIDE
     Dosage: UNK
  31. FUROSEMIDE. [Concomitant]
     Active Substance: FUROSEMIDE
  32. FLUOXETINE HYDROCHLORIDE. [Concomitant]
     Active Substance: FLUOXETINE HYDROCHLORIDE
  33. CITALOPRAM [Concomitant]
     Active Substance: CITALOPRAM HYDROBROMIDE
     Indication: MAJOR DEPRESSION
     Dosage: UNK, UNKNOWN
     Route: 065
  34. HYDROCODONE [Concomitant]
     Active Substance: HYDROCODONE
  35. DIAZIDE                            /00007602/ [Concomitant]
     Active Substance: HYDRALAZINE HYDROCHLORIDE
  36. SULFAMETHOXAZOLE [Concomitant]
     Active Substance: SULFAMETHOXAZOLE

REACTIONS (47)
  - Confusional state [Recovered/Resolved]
  - Disturbance in attention [Unknown]
  - Affect lability [Unknown]
  - Ear pain [Unknown]
  - Tremor [Unknown]
  - Suicidal ideation [Unknown]
  - Fatigue [Unknown]
  - Sleep disorder [Unknown]
  - Facial paralysis [Unknown]
  - Pain [Unknown]
  - Sciatica [Unknown]
  - Somnolence [Unknown]
  - Vertigo [Recovered/Resolved]
  - Fatigue [Recovered/Resolved]
  - Dyspepsia [Unknown]
  - Sensory disturbance [Unknown]
  - Nightmare [Unknown]
  - Vertigo [Unknown]
  - Depression [Unknown]
  - Pallor [Unknown]
  - Heart rate abnormal [Unknown]
  - Hypoaesthesia oral [Unknown]
  - Insomnia [Unknown]
  - Nausea [Unknown]
  - Asthenia [Recovered/Resolved]
  - Memory impairment [Unknown]
  - Crying [Unknown]
  - Intraocular pressure increased [Unknown]
  - Agitation [Unknown]
  - Irritability [Unknown]
  - Vomiting [Unknown]
  - Headache [Unknown]
  - Contusion [Unknown]
  - Hypoaesthesia [Unknown]
  - Dizziness [Recovered/Resolved]
  - Appetite disorder [Unknown]
  - Anal incontinence [Unknown]
  - Presyncope [Recovered/Resolved]
  - Anxiety [Unknown]
  - Hyperhidrosis [Unknown]
  - Seizure [Unknown]
  - Thinking abnormal [Unknown]
  - Drug withdrawal syndrome [Unknown]
  - Syncope [Recovered/Resolved]
  - Self esteem decreased [Unknown]
  - Dysphonia [Unknown]
  - Paraesthesia [Unknown]

NARRATIVE: CASE EVENT DATE: 20100422
